FAERS Safety Report 7490666-4 (Version None)
Quarter: 2011Q2

REPORT INFORMATION
  Report Type: 
  Country: None (occurrence: None)
  Receive Date: 20110519
  Receipt Date: 20110509
  Transmission Date: 20111010
  Serious: Yes (Hospitalization)
  Sender: FDA-Public Use
  Company Number: FR-SANOFI-AVENTIS-2011SA029591

PATIENT
  Age: 75 Year
  Sex: Female
  Weight: 45 kg

DRUGS (4)
  1. ARAVA [Suspect]
     Indication: RHEUMATOID ARTHRITIS
     Route: 048
     Dates: start: 20110101, end: 20110412
  2. ACETAMINOPHEN [Concomitant]
     Indication: RHEUMATOID ARTHRITIS
     Route: 048
  3. PREDNISONE [Concomitant]
     Indication: RHEUMATOID ARTHRITIS
     Route: 048
  4. FOSAMAX [Concomitant]
     Route: 048

REACTIONS (2)
  - ERYTHEMA MULTIFORME [None]
  - CUTANEOUS LUPUS ERYTHEMATOSUS [None]
